FAERS Safety Report 10218902 (Version 1)
Quarter: 2014Q2

REPORT INFORMATION
  Report Type: Spontaneous
  Country: DZ (occurrence: DZ)
  Receive Date: 20140605
  Receipt Date: 20140605
  Transmission Date: 20141212
  Serious: Yes (Other)
  Sender: FDA-Public Use
  Company Number: DZ-BAXTER-2014BAX027319

PATIENT
  Age: 33 Year
  Sex: Male

DRUGS (2)
  1. CAPD FORMULA 55 C DIALYSE SOL 2L [Suspect]
     Indication: RENAL FAILURE CHRONIC
     Dosage: 4 BAGS
     Route: 033
     Dates: start: 20120317
  2. CAPD FORMULA 55 C DIALYSE SOL 2L [Suspect]
     Indication: PERITONEAL DIALYSIS

REACTIONS (3)
  - Peritonitis [Unknown]
  - Peritoneal dialysis complication [Unknown]
  - Poor personal hygiene [None]
